FAERS Safety Report 9600430 (Version 1)
Quarter: 2013Q4

REPORT INFORMATION
  Report Type: Spontaneous
  Country: US (occurrence: US)
  Receive Date: 20131004
  Receipt Date: 20131004
  Transmission Date: 20140711
  Serious: No
  Sender: FDA-Public Use
  Company Number: US-AMGEN-USASP2013035661

PATIENT
  Age: 47 Year
  Sex: Female
  Weight: 53.97 kg

DRUGS (5)
  1. ENBREL [Suspect]
     Indication: PRODUCT USED FOR UNKNOWN INDICATION
     Dosage: 50 MG, QWK
     Route: 058
  2. METHOTREXATE [Concomitant]
     Dosage: 50 MG, PER 2 ML
  3. MULTIVITAMINS, PLAIN [Concomitant]
     Dosage: UNK
  4. FOLIC ACID [Concomitant]
     Dosage: UNK
  5. IRON PLUS                          /00292601/ [Concomitant]
     Dosage: 100 MG, UNK

REACTIONS (1)
  - Therapeutic response decreased [Unknown]
